FAERS Safety Report 5843153-0 (Version None)
Quarter: 2008Q3

REPORT INFORMATION
  Report Type: 
  Country: None (occurrence: None)
  Receive Date: 20080813
  Receipt Date: 20080730
  Transmission Date: 20090109
  Serious: Yes (Other)
  Sender: FDA-Public Use
  Company Number: PHBS2008US05287

PATIENT
  Age: 3 Month
  Sex: Male

DRUGS (3)
  1. CYCLOSPORINE [Suspect]
     Indication: LYMPHOHISTIOCYTOSIS
  2. STEROIDS NOS [Concomitant]
     Indication: LYMPHOHISTIOCYTOSIS
  3. ETOPOSIDE [Concomitant]

REACTIONS (10)
  - DEBRIDEMENT [None]
  - FUNGAL INFECTION [None]
  - PAIN [None]
  - RENAL FAILURE [None]
  - RESPIRATORY DISORDER [None]
  - SKIN DISCOLOURATION [None]
  - SKIN LESION [None]
  - SKIN NECROSIS [None]
  - VENOOCCLUSIVE DISEASE [None]
  - ZYGOMYCOSIS [None]
